FAERS Safety Report 14693089 (Version 2)
Quarter: 2018Q2

REPORT INFORMATION
  Report Type: Spontaneous
  Country: US (occurrence: US)
  Receive Date: 20180329
  Receipt Date: 20180427
  Transmission Date: 20180711
  Serious: Yes (Hospitalization, Other)
  Sender: FDA-Public Use
  Company Number: PHEH2018US011741

PATIENT
  Age: 72 Year
  Sex: Male

DRUGS (11)
  1. TAFINLAR [Suspect]
     Active Substance: DABRAFENIB MESYLATE
     Indication: METASTATIC MALIGNANT MELANOMA
     Dosage: 150 MG, BID
     Route: 048
     Dates: start: 20180316, end: 20180320
  2. ASPIRIN 81 [Concomitant]
     Active Substance: ASPIRIN
     Indication: PRODUCT USED FOR UNKNOWN INDICATION
     Dosage: 81 MG, UNK
     Route: 048
  3. TAFINLAR [Suspect]
     Active Substance: DABRAFENIB MESYLATE
     Dosage: 150 MG, BID
     Route: 048
     Dates: start: 20180322
  4. TAFINLAR [Suspect]
     Active Substance: DABRAFENIB MESYLATE
     Dosage: 2 DF, BID
     Route: 048
  5. DEXAMETASON [Concomitant]
     Active Substance: DEXAMETHASONE
     Indication: PRODUCT USED FOR UNKNOWN INDICATION
     Dosage: 1 DF, Q12H
     Route: 048
  6. MEKINIST [Suspect]
     Active Substance: TRAMETINIB DIMETHYL SULFOXIDE
     Indication: METASTATIC MALIGNANT MELANOMA
     Dosage: 2 MG, QD
     Route: 048
     Dates: start: 20180316, end: 20180320
  7. MEKINIST [Suspect]
     Active Substance: TRAMETINIB DIMETHYL SULFOXIDE
     Dosage: 2 MG, QD
     Route: 048
     Dates: start: 20180404
  8. PANTOPRAZOLE SODIUM. [Concomitant]
     Active Substance: PANTOPRAZOLE SODIUM
     Indication: PRODUCT USED FOR UNKNOWN INDICATION
     Dosage: 1 DF, QD (HALF HOUR BEFORE BREAKFAST AND BEFORE STEROID MEDICATION DAILY)
     Route: 048
  9. DOXAZOSIN MESYLATE. [Concomitant]
     Active Substance: DOXAZOSIN MESYLATE
     Indication: PRODUCT USED FOR UNKNOWN INDICATION
     Dosage: 1 DF, BID
     Route: 048
  10. MEKINIST [Suspect]
     Active Substance: TRAMETINIB DIMETHYL SULFOXIDE
     Dosage: 1 DF, QD
     Route: 048
  11. SIMVASTATIN. [Concomitant]
     Active Substance: SIMVASTATIN
     Indication: PRODUCT USED FOR UNKNOWN INDICATION
     Dosage: 0.5 DF, QD
     Route: 048

REACTIONS (20)
  - Haemoglobin decreased [Unknown]
  - Lymphocyte count decreased [Unknown]
  - Protein total decreased [Unknown]
  - Gait inability [Recovering/Resolving]
  - Mobility decreased [Recovering/Resolving]
  - Haematocrit decreased [Unknown]
  - Blood albumin decreased [Unknown]
  - Electrocardiogram abnormal [Unknown]
  - Monocyte count decreased [Unknown]
  - Blood urea increased [Unknown]
  - Blood calcium decreased [Unknown]
  - Injury [Unknown]
  - Mean cell volume increased [Unknown]
  - Metastases to lung [Unknown]
  - Diastolic dysfunction [Unknown]
  - Dermatitis [Unknown]
  - Neutrophil count increased [Unknown]
  - Aortic valve incompetence [Unknown]
  - Metastases to central nervous system [Unknown]
  - Aortic aneurysm [Unknown]

NARRATIVE: CASE EVENT DATE: 20180320
